FAERS Safety Report 9063965 (Version 1)
Quarter: 2013Q1

REPORT INFORMATION
  Report Type: Report from Study
  Country: US (occurrence: US)
  Receive Date: 20130131
  Receipt Date: 20130131
  Transmission Date: 20140127
  Serious: No
  Sender: FDA-Public Use
  Company Number: US-ABBOTT-12P-163-1007779-00

PATIENT
  Age: 28 Year
  Sex: Female

DRUGS (5)
  1. HUMIRA [Suspect]
     Indication: CROHN^S DISEASE
     Dosage: INITIAL DOSE
     Dates: start: 20121107
  2. IMURAN [Concomitant]
     Indication: PRODUCT USED FOR UNKNOWN INDICATION
     Dosage: 250 MG, 2 TABS DAILY
  3. ASACOL [Concomitant]
     Indication: CROHN^S DISEASE
     Dosage: 600 MG, 6 TABS DAILY
  4. ASA [Concomitant]
     Indication: HEADACHE
     Dosage: SOMETIMES TAKEN WITH PLAIN TYLENOL
  5. PLAIN TYLENOL [Concomitant]
     Indication: HEADACHE
     Dosage: SOMETIMES TAKEN WITH ASA

REACTIONS (1)
  - Haematochezia [Recovering/Resolving]
